FAERS Safety Report 5061756-0 (Version None)
Quarter: 2006Q3

REPORT INFORMATION
  Report Type: 
  Country: None (occurrence: None)
  Receive Date: 20060726
  Receipt Date: 20051004
  Transmission Date: 20061208
  Serious: No
  Sender: FDA-Public Use
  Company Number: S2005US14940

PATIENT
  Age: 32 Year
  Sex: Male

DRUGS (1)
  1. DYAZIDE [Suspect]
     Route: 048
     Dates: start: 20050825

REACTIONS (1)
  - DRUG INEFFECTIVE [None]
